FAERS Safety Report 18876262 (Version 2)
Quarter: 2021Q1

REPORT INFORMATION
  Report Type: Report from Study
  Country: None (occurrence: US)
  Receive Date: 20210211
  Receipt Date: 20210223
  Transmission Date: 20210420
  Serious: Yes (Death)
  Sender: FDA-Public Use
  Company Number: US-ABBVIE-21K-163-3767552-00

PATIENT
  Sex: Female

DRUGS (2)
  1. VENCLEXTA [Suspect]
     Active Substance: VENETOCLAX
     Indication: ACUTE MYELOID LEUKAEMIA
     Dosage: 50MG DOSAGE: TAKE 1 TABLET BY MOUTH EVERY DAY (TAKE WITH 10MG TABLETS FOR 70MG DAILY)
     Route: 048
  2. VENCLEXTA [Suspect]
     Active Substance: VENETOCLAX
     Dosage: 10MG DOSAGE: TAKE 2 TABLET(S) BY MOUTH EVERY DAY (TAKE WITH 50MG TABLET FOR 70MG DAILY)
     Route: 048

REACTIONS (2)
  - Death [Fatal]
  - Off label use [Unknown]
